FAERS Safety Report 6997765-1 (Version None)
Quarter: 2010Q3

REPORT INFORMATION
  Report Type: 
  Country: None (occurrence: None)
  Receive Date: 20100919
  Receipt Date: 20100914
  Transmission Date: 20110219
  Serious: Yes (Hospitalization, Other)
  Sender: FDA-Public Use
  Company Number: US-BRISTOL-MYERS SQUIBB COMPANY-15207384

PATIENT
  Age: 57 Year
  Sex: Female
  Weight: 50 kg

DRUGS (2)
  1. IXEMPRA KIT [Suspect]
     Indication: BREAST CANCER
     Dosage: 21MAY10,LAST DOSE ON:4JUN2010; CYCLE 7 DAY28:17JUN2010 ON DAY 1,8 +15. 75MG,04/JUN/2010
     Route: 042
     Dates: start: 20091204
  2. BEVACIZUMAB [Suspect]
     Indication: BREAST CANCER
     Dosage: 21MAY10,LAST DOSE ON:4JUN2010; CYCLE 7 DAY28:17JUN2010 ON DAY 1 +15. 1080MG,04/JUN/2010
     Route: 042
     Dates: start: 20091204

REACTIONS (1)
  - CHOLECYSTITIS [None]
